FAERS Safety Report 5259330-6 (Version None)
Quarter: 2007Q1

REPORT INFORMATION
  Report Type: 
  Country: None (occurrence: None)
  Receive Date: 20070305
  Receipt Date: 20070302
  Transmission Date: 20070707
  Serious: Yes (Death)
  Sender: FDA-Public Use
  Company Number: LTI2007A00026

PATIENT
  Age: 82 Year
  Sex: Male

DRUGS (3)
  1. LEUPRORELIN  DEPOT (3M) (LEUPRORELIN ACETATE)  (INJECTION) [Suspect]
     Indication: PROSTATE CANCER
     Dosage: 11.25 MG (11.25 MG, 1 IN 3 M) SUBCUTANEOUS
     Route: 058
     Dates: start: 20060719
  2. FLUTAMIDE [Concomitant]
  3. MAGNE-B6 (DYNAMAG) (TABLETS) [Concomitant]

REACTIONS (1)
  - DEATH [None]
